FAERS Safety Report 6173889-6 (Version None)
Quarter: 2009Q2

REPORT INFORMATION
  Report Type: 
  Country: None (occurrence: None)
  Receive Date: 20090430
  Receipt Date: 20090424
  Transmission Date: 20091009
  Serious: Yes (Death)
  Sender: FDA-Public Use
  Company Number: US-PFIZER INC-2009170085

PATIENT
  Sex: Male
  Weight: 72.1 kg

DRUGS (1)
  1. CAMPTOSAR [Suspect]
     Dosage: 690 EVERY 3 WEEKS

REACTIONS (2)
  - COLON CANCER [None]
  - DISEASE PROGRESSION [None]
